FAERS Safety Report 7099291-0 (Version None)
Quarter: 2010Q4

REPORT INFORMATION
  Report Type: 
  Country: None (occurrence: None)
  Receive Date: 20101112
  Receipt Date: 20101110
  Transmission Date: 20110411
  Serious: Yes (Death)
  Sender: FDA-Public Use
  Company Number: PHHY2010DE75842

PATIENT
  Sex: Female

DRUGS (7)
  1. ALISKIREN ALI+ [Suspect]
     Indication: HYPERTENSION
     Dosage: 150 MG/D
     Dates: start: 20081208
  2. VALSARTAN [Suspect]
     Dosage: 160 MG/D
  3. BETA BLOCKING AGENTS [Concomitant]
  4. DIURETICS [Concomitant]
  5. ACE INHIBITOR NOS [Concomitant]
  6. ANTIPLATELET (NSAR) [Concomitant]
  7. ORAL ANTIDIABETICS [Concomitant]

REACTIONS (3)
  - BLOOD CREATININE INCREASED [None]
  - BLOOD GLUCOSE INCREASED [None]
  - DEATH [None]
